FAERS Safety Report 4966795-3 (Version None)
Quarter: 2006Q2

REPORT INFORMATION
  Report Type: 
  Country: None (occurrence: None)
  Receive Date: 20060407
  Receipt Date: 20051012
  Transmission Date: 20061013
  Serious: Yes (Hospitalization, Other)
  Sender: FDA-Public Use
  Company Number: US-MERCK-0510USA07333

PATIENT
  Age: 40 Year
  Sex: Female
  Weight: 82 kg

DRUGS (9)
  1. VIOXX [Suspect]
     Indication: BACK PAIN
     Route: 048
     Dates: start: 20020501, end: 20020801
  2. VIOXX [Suspect]
     Route: 048
  3. VIOXX [Suspect]
     Indication: MUSCLE SPASMS
     Route: 048
     Dates: start: 20020501, end: 20020801
  4. VIOXX [Suspect]
     Route: 048
  5. RELAFEN [Concomitant]
     Route: 065
  6. ZYRTEC [Concomitant]
     Route: 065
  7. PAXIL [Concomitant]
     Indication: DEPRESSION
     Route: 065
     Dates: start: 20000101, end: 20020101
  8. SINGULAIR [Concomitant]
     Route: 065
  9. TORADOL [Concomitant]
     Route: 065
     Dates: start: 20010101, end: 20030101

REACTIONS (11)
  - ANGINA PECTORIS [None]
  - ANXIETY [None]
  - ARTERIAL OCCLUSIVE DISEASE [None]
  - BLOOD CHOLESTEROL INCREASED [None]
  - BREAST DISORDER [None]
  - CARDIAC DISORDER [None]
  - CONDITION AGGRAVATED [None]
  - DEPRESSION [None]
  - EMOTIONAL DISTRESS [None]
  - HYPERTENSION [None]
  - RESPIRATORY DISORDER [None]
